FAERS Safety Report 8175609-2 (Version None)
Quarter: 2012Q1

REPORT INFORMATION
  Report Type: 
  Country: None (occurrence: None)
  Receive Date: 20120301
  Receipt Date: 20120222
  Transmission Date: 20120608
  Serious: Yes (Hospitalization)
  Sender: FDA-Public Use
  Company Number: US-BIOGENIDEC-2012BI004161

PATIENT
  Age: 27 Year
  Sex: Female

DRUGS (6)
  1. TYSABRI [Suspect]
     Indication: MULTIPLE SCLEROSIS
     Route: 042
     Dates: start: 20110927, end: 20111201
  2. OXYCODONE HCL [Concomitant]
     Indication: PAIN
  3. XANAX [Concomitant]
     Indication: ANXIETY
  4. OMEPRAZOLE [Concomitant]
     Indication: GASTROOESOPHAGEAL REFLUX DISEASE
  5. TIZANIDINE HCL [Concomitant]
     Indication: MUSCLE SPASTICITY
  6. AMBIEN [Concomitant]
     Indication: SLEEP DISORDER

REACTIONS (1)
  - MULTIPLE SCLEROSIS RELAPSE [None]
